FAERS Safety Report 5514119-5 (Version None)
Quarter: 2007Q4

REPORT INFORMATION
  Report Type: 
  Country: None (occurrence: None)
  Receive Date: 20071113
  Receipt Date: 20071109
  Transmission Date: 20080405
  Serious: Yes (Other)
  Sender: FDA-Public Use
  Company Number: GB-BRISTOL-MYERS SQUIBB COMPANY-13976980

PATIENT
  Age: 37 Year
  Sex: Male
  Weight: 106 kg

DRUGS (2)
  1. ABILIFY [Suspect]
     Indication: BIPOLAR DISORDER
     Route: 048
     Dates: start: 20070913, end: 20070928
  2. ABILIFY [Suspect]
     Indication: ANXIETY
     Route: 048
     Dates: start: 20070913, end: 20070928

REACTIONS (4)
  - ANXIETY [None]
  - INSOMNIA [None]
  - PALPITATIONS [None]
  - THINKING ABNORMAL [None]
